FAERS Safety Report 9200650 (Version 1)
Quarter: 2013Q1

REPORT INFORMATION
  Report Type: Spontaneous
  Country: IT (occurrence: IT)
  Receive Date: 20130331
  Receipt Date: 20130331
  Transmission Date: 20140127
  Serious: Yes (Hospitalization)
  Sender: FDA-Public Use
  Company Number: IT-TEVA-393455ISR

PATIENT
  Sex: Female

DRUGS (4)
  1. METFORMIN [Suspect]
  2. LORMETAZEPAM [Suspect]
  3. DELORAZEPAM [Suspect]
  4. GLIMEPIRIDE [Suspect]

REACTIONS (1)
  - Toxicity to various agents [Recovering/Resolving]
